FAERS Safety Report 14267404 (Version 1)
Quarter: 2017Q4

REPORT INFORMATION
  Report Type: Spontaneous
  Country: US (occurrence: None)
  Receive Date: 20171209
  Receipt Date: 20171209
  Transmission Date: 20180321
  Serious: Yes (Life-Threatening, Hospitalization)
  Sender: FDA-Public Use
  Company Number: None

PATIENT
  Age: 61 Year
  Sex: Male
  Weight: 87 kg

DRUGS (1)
  1. IOHEXOL [Suspect]
     Active Substance: IOHEXOL
     Indication: PULMONARY EMBOLISM
     Route: 042
     Dates: start: 20170403, end: 20170403

REACTIONS (6)
  - Hyperhidrosis [None]
  - Tachycardia [None]
  - Swollen tongue [None]
  - Angioedema [None]
  - Respiratory distress [None]
  - Respiratory alkalosis [None]

NARRATIVE: CASE EVENT DATE: 20170404
